FAERS Safety Report 21553901 (Version 1)
Quarter: 2022Q4

REPORT INFORMATION
  Report Type: Spontaneous
  Country: US (occurrence: US)
  Receive Date: 20221104
  Receipt Date: 20221104
  Transmission Date: 20230113
  Serious: No
  Sender: FDA-Public Use
  Company Number: US-BEH-2022151258

PATIENT
  Sex: Female
  Weight: 104.31 kg

DRUGS (1)
  1. HIZENTRA [Suspect]
     Active Substance: HUMAN IMMUNOGLOBULIN G
     Indication: Immunodeficiency common variable
     Dosage: UNK, QW
     Route: 058
     Dates: start: 20211109

REACTIONS (5)
  - Dyspnoea [Unknown]
  - Serum ferritin decreased [Unknown]
  - Contusion [Unknown]
  - Fatigue [Unknown]
  - Injection site reaction [Unknown]
